FAERS Safety Report 5498549-6 (Version None)
Quarter: 2007Q4

REPORT INFORMATION
  Report Type: 
  Country: None (occurrence: None)
  Receive Date: 20071026
  Receipt Date: 20071016
  Transmission Date: 20080405
  Serious: Yes (Hospitalization)
  Sender: FDA-Public Use
  Company Number: PHEH2007US13775

PATIENT
  Age: 89 Year
  Sex: Male

DRUGS (4)
  1. COUMADIN [Suspect]
     Dosage: 4 MG, UNK
  2. PROSCAR [Concomitant]
  3. FLOMAX [Concomitant]
  4. DIOVAN [Suspect]

REACTIONS (2)
  - DRUG DISPENSING ERROR [None]
  - HAEMORRHAGE [None]
